FAERS Safety Report 14273500 (Version 4)
Quarter: 2018Q3

REPORT INFORMATION
  Report Type: Spontaneous
  Country: US (occurrence: US)
  Receive Date: 20171212
  Receipt Date: 20180703
  Transmission Date: 20181010
  Serious: No
  Sender: FDA-Public Use
  Company Number: US-PFIZER INC-2017526408

PATIENT
  Age: 52 Year
  Sex: Female
  Weight: 93.88 kg

DRUGS (27)
  1. ZOFRAN [Concomitant]
     Active Substance: ONDANSETRON HYDROCHLORIDE
  2. DOCETAXEL. [Suspect]
     Active Substance: DOCETAXEL
     Indication: BREAST CANCER
     Dosage: 151 MG, EVERY 3 WEEKS
     Dates: start: 20150312
  3. COMPAZINE /00013302/ [Concomitant]
     Active Substance: PROCHLORPERAZINE EDISYLATE
  4. XYLOCAINE [Concomitant]
     Active Substance: LIDOCAINE HYDROCHLORIDE
  5. BENADRYL [Concomitant]
     Active Substance: DIPHENHYDRAMINE HYDROCHLORIDE
  6. DOCETAXEL. [Suspect]
     Active Substance: DOCETAXEL
     Dosage: 156 MG, EVERY 3 WEEKS
     Dates: start: 20150501
  7. KENALOG [Concomitant]
     Active Substance: TRIAMCINOLONE ACETONIDE
     Dosage: UNK
     Dates: start: 2012
  8. DECADRON [Concomitant]
     Active Substance: DEXAMETHASONE
  9. KYTRIL [Concomitant]
     Active Substance: GRANISETRON HYDROCHLORIDE
  10. TEMAZEPAM. [Concomitant]
     Active Substance: TEMAZEPAM
  11. EFFEXOR XR [Concomitant]
     Active Substance: VENLAFAXINE HYDROCHLORIDE
  12. MYCOSTATIN [Concomitant]
     Active Substance: NYSTATIN
  13. LISINOPRIL. [Concomitant]
     Active Substance: LISINOPRIL
     Dosage: UNK
     Dates: start: 2005
  14. CYTOXAN [Concomitant]
     Active Substance: CYCLOPHOSPHAMIDE
     Indication: BREAST CANCER
  15. GABAPENTIN. [Concomitant]
     Active Substance: GABAPENTIN
  16. SILADRYL [Concomitant]
  17. PROTONIX /00661201/ [Concomitant]
     Active Substance: OMEPRAZOLE
  18. DOCETAXEL. [Suspect]
     Active Substance: DOCETAXEL
     Dosage: 159 MG, EVERY 3 WEEKS
     Dates: start: 20150402
  19. HYDROCODONE/ACETAMINOPHEN [Concomitant]
     Active Substance: ACETAMINOPHEN\HYDROCODONE
     Dosage: UNK
     Dates: start: 2005
  20. TRAMADOL. [Concomitant]
     Active Substance: TRAMADOL
     Dosage: UNK
     Dates: start: 2005
  21. LORAZEPAM. [Concomitant]
     Active Substance: LORAZEPAM
  22. AMBIEN [Concomitant]
     Active Substance: ZOLPIDEM TARTRATE
  23. BISACODYL. [Concomitant]
     Active Substance: BISACODYL
  24. BENTYL [Concomitant]
     Active Substance: DICYCLOMINE HYDROCHLORIDE
  25. DOCETAXEL. [Suspect]
     Active Substance: DOCETAXEL
     Dosage: 157 MG, EVERY 3 WEEKS
     Dates: start: 20150522, end: 20150705
  26. ATENOLOL. [Concomitant]
     Active Substance: ATENOLOL
     Dosage: UNK
     Dates: start: 2005
  27. TOPAMAX [Concomitant]
     Active Substance: TOPIRAMATE

REACTIONS (5)
  - Hair colour changes [Not Recovered/Not Resolved]
  - Alopecia [Not Recovered/Not Resolved]
  - Hair disorder [Not Recovered/Not Resolved]
  - Hair texture abnormal [Not Recovered/Not Resolved]
  - Madarosis [Not Recovered/Not Resolved]

NARRATIVE: CASE EVENT DATE: 20160105
